FAERS Safety Report 12286216 (Version 1)
Quarter: 2016Q2

REPORT INFORMATION
  Report Type: Spontaneous
  Country: DE (occurrence: DE)
  Receive Date: 20160420
  Receipt Date: 20160420
  Transmission Date: 20160815
  Serious: Yes (Hospitalization)
  Sender: FDA-Public Use
  Company Number: DE-PFIZER INC-2016211969

PATIENT
  Age: 45 Year
  Sex: Female
  Weight: 70 kg

DRUGS (3)
  1. HYPNOREX [Concomitant]
     Active Substance: LITHIUM CARBONATE
     Indication: DEPRESSION
     Dosage: 2X/DAY (400MG-0-200MG)
     Route: 048
     Dates: start: 2013
  2. PREGABALIN. [Suspect]
     Active Substance: PREGABALIN
     Indication: SEDATION
     Dosage: 2X/DAY (50MG-0-150MG)
     Route: 048
     Dates: start: 201510, end: 201602
  3. TRANYLCYPROMIN [Concomitant]
     Indication: DEPRESSION
     Dosage: 40 MG, 1X/DAY
     Route: 048
     Dates: start: 201510

REACTIONS (7)
  - Muscle rigidity [Recovered/Resolved]
  - Tremor [Recovered/Resolved]
  - Dizziness [Recovered/Resolved]
  - Product use issue [Unknown]
  - Oedema [Recovered/Resolved]
  - Myalgia [Recovered/Resolved]
  - Drug withdrawal syndrome [Recovered/Resolved]

NARRATIVE: CASE EVENT DATE: 201510
